FAERS Safety Report 7823566-8 (Version None)
Quarter: 2011Q4

REPORT INFORMATION
  Report Type: 
  Country: None (occurrence: None)
  Receive Date: 20111019
  Receipt Date: 20111014
  Transmission Date: 20120403
  Serious: Yes (Hospitalization)
  Sender: FDA-Public Use
  Company Number: CA-AMGEN-CANSP2011039647

PATIENT
  Age: 46 Year
  Sex: Male
  Weight: 70 kg

DRUGS (5)
  1. ELAVIL [Concomitant]
     Indication: POOR QUALITY SLEEP
     Dosage: UNK UNK, QHS
     Route: 048
     Dates: start: 20110322
  2. MULTI-VITAMIN [Concomitant]
  3. NAPROXEN [Suspect]
     Indication: ANKYLOSING SPONDYLITIS
     Dosage: 500 MG, UNK
     Route: 048
     Dates: start: 20110322, end: 20110712
  4. ENBREL [Suspect]
     Indication: ANKYLOSING SPONDYLITIS
     Dosage: 50 MG, Q10D
     Dates: start: 20070621
  5. PANTOPRAZOLE SODIUM [Concomitant]

REACTIONS (1)
  - GASTROINTESTINAL HAEMORRHAGE [None]
